FAERS Safety Report 6603674-X (Version None)
Quarter: 2010Q1

REPORT INFORMATION
  Report Type: 
  Country: None (occurrence: None)
  Receive Date: 20100226
  Receipt Date: 20100217
  Transmission Date: 20100710
  Serious: Yes (Other)
  Sender: FDA-Public Use
  Company Number: US-JNJFOC-20100111402

PATIENT
  Sex: Female
  Weight: 58.97 kg

DRUGS (6)
  1. INVEGA SUSTENNA [Suspect]
     Indication: DRUG USE FOR UNKNOWN INDICATION
     Route: 030
  2. KEPPRA [Concomitant]
     Indication: DRUG USE FOR UNKNOWN INDICATION
  3. ZONEGRAN [Concomitant]
     Indication: DRUG USE FOR UNKNOWN INDICATION
  4. ESKALITH CR [Concomitant]
     Indication: DRUG USE FOR UNKNOWN INDICATION
  5. RISPERDAL [Concomitant]
     Indication: DRUG USE FOR UNKNOWN INDICATION
  6. SEROQUEL XR [Concomitant]
     Indication: DRUG USE FOR UNKNOWN INDICATION

REACTIONS (1)
  - CONVULSION [None]
